FAERS Safety Report 5018206-X (Version None)
Quarter: 2006Q2

REPORT INFORMATION
  Report Type: 
  Country: None (occurrence: None)
  Receive Date: 20060530
  Receipt Date: 20060515
  Transmission Date: 20061013
  Serious: Yes (Hospitalization)
  Sender: FDA-Public Use
  Company Number: 2006065174

PATIENT
  Age: 75 Year
  Sex: Male

DRUGS (3)
  1. SUTENT [Suspect]
     Indication: METASTATIC RENAL CELL CARCINOMA
     Dosage: 50 MG, 1 IN 1 D, ORAL
     Route: 048
     Dates: start: 20060224, end: 20060503
  2. NORVASC [Concomitant]
  3. CIPROFLOXACIN [Concomitant]

REACTIONS (4)
  - CHOLANGITIS [None]
  - CHOLELITHIASIS [None]
  - HAEMOPHILIA [None]
  - JAUNDICE [None]
